FAERS Safety Report 24738830 (Version 7)
Quarter: 2025Q3

REPORT INFORMATION
  Report Type: Report from Study
  Country: US (occurrence: US)
  Receive Date: 20241216
  Receipt Date: 20250814
  Transmission Date: 20251021
  Serious: Yes (Other)
  Sender: UCB
  Company Number: US-UCBSA-2024056692

PATIENT
  Age: 5 Year
  Sex: Male
  Weight: 39 kg

DRUGS (8)
  1. FINTEPLA [Suspect]
     Active Substance: FENFLURAMINE
     Indication: Severe myoclonic epilepsy of infancy
     Dates: start: 20220802
  2. FINTEPLA [Suspect]
     Active Substance: FENFLURAMINE
     Indication: Seizure
     Dates: start: 20220906
  3. FINTEPLA [Suspect]
     Active Substance: FENFLURAMINE
     Dosage: 12.1 MILLIGRAM, ONCE DAILY (QD)
     Dates: start: 20241209
  4. FINTEPLA [Suspect]
     Active Substance: FENFLURAMINE
  5. FINTEPLA [Suspect]
     Active Substance: FENFLURAMINE
     Dosage: 3 MILLILITER, 2X/DAY (BID)
  6. FINTEPLA [Suspect]
     Active Substance: FENFLURAMINE
     Dosage: 3 MILLILITER, 2X/DAY (BID)
  7. FINTEPLA [Suspect]
     Active Substance: FENFLURAMINE
  8. FINTEPLA [Suspect]
     Active Substance: FENFLURAMINE
     Dosage: 3 MILLILITER, 2X/DAY (BID)

REACTIONS (8)
  - Seizure [Recovered/Resolved]
  - Tricuspid valve incompetence [Unknown]
  - Weight increased [Not Recovered/Not Resolved]
  - Anxiety [Unknown]
  - Pyrexia [Not Recovered/Not Resolved]
  - Vomiting [Not Recovered/Not Resolved]
  - Therapeutic response unexpected [Not Recovered/Not Resolved]
  - Product use issue [Unknown]

NARRATIVE: CASE EVENT DATE: 20241030
